FAERS Safety Report 7821783-4 (Version None)
Quarter: 2011Q4

REPORT INFORMATION
  Report Type: 
  Country: None (occurrence: None)
  Receive Date: 20111018
  Receipt Date: 20101124
  Transmission Date: 20120403
  Serious: No
  Sender: FDA-Public Use
  Company Number: US-ASTRAZENECA-2010SE47989

PATIENT
  Age: 11838 Day
  Sex: Female
  Weight: 56.7 kg

DRUGS (3)
  1. SYMBICORT [Suspect]
     Indication: ASTHMA
     Dosage: 160/4.5 DAILY
     Route: 055
     Dates: start: 20080101, end: 20100909
  2. SYMBICORT [Suspect]
     Dosage: 160/4.5
     Route: 055
     Dates: start: 20100909
  3. FEMCON FE [Concomitant]
     Indication: CONTRACEPTION
     Dosage: DAILY

REACTIONS (2)
  - DRUG DOSE OMISSION [None]
  - ASTHMA [None]
